FAERS Safety Report 7346620-6 (Version None)
Quarter: 2011Q1

REPORT INFORMATION
  Report Type: 
  Country: None (occurrence: None)
  Receive Date: 20110228
  Receipt Date: 20110214
  Transmission Date: 20110831
  Serious: Yes (Death)
  Sender: FDA-Public Use
  Company Number: 2010-4258

PATIENT
  Age: 1 Year
  Sex: Female

DRUGS (4)
  1. RANITIDINE [Concomitant]
  2. PARACETAMOL (PARACETAMOL) [Concomitant]
  3. DYSPORT [Suspect]
     Indication: MUSCLE SPASTICITY
     Dosage: 15 UNITS/KG (SINGLE CYCLE)
     Dates: start: 20100201, end: 20100201
  4. BACLOFEN [Concomitant]

REACTIONS (1)
  - RESPIRATORY FAILURE [None]
